FAERS Safety Report 5813844-6 (Version None)
Quarter: 2008Q3

REPORT INFORMATION
  Report Type: 
  Country: None (occurrence: None)
  Receive Date: 20080717
  Receipt Date: 20080709
  Transmission Date: 20090109
  Serious: Yes (Congenital Anomaly, Other)
  Sender: FDA-Public Use
  Company Number: PHFR2005GB00890

PATIENT

DRUGS (1)
  1. GLEEVEC [Suspect]
     Dosage: MATERNAL DOSE: 400 MG QD
     Route: 064

REACTIONS (8)
  - DRUG EXPOSURE DURING PREGNANCY [None]
  - EXOMPHALOS [None]
  - HEMIVERTEBRA [None]
  - KIDNEY DUPLEX [None]
  - POOR WEIGHT GAIN NEONATAL [None]
  - PULMONARY HYPOPLASIA [None]
  - SHOULDER DEFORMITY [None]
  - SINGLE FUNCTIONAL KIDNEY [None]
